FAERS Safety Report 9518495 (Version 1)
Quarter: 2013Q3

REPORT INFORMATION
  Report Type: Spontaneous
  Country: US (occurrence: None)
  Receive Date: 20130910
  Receipt Date: 20130910
  Transmission Date: 20140515
  Serious: Yes (Life-Threatening, Hospitalization)
  Sender: FDA-Public Use
  Company Number: 2013P1018935

PATIENT
  Age: 28 Year
  Sex: Male

DRUGS (4)
  1. CLONIDINE [Suspect]
  2. CLONAZEPAM [Suspect]
  3. QUETIAPINE [Concomitant]
  4. METHADONE [Concomitant]

REACTIONS (7)
  - Intentional overdose [None]
  - Suicide attempt [None]
  - Sinus bradycardia [None]
  - Respiratory acidosis [None]
  - Drug interaction [None]
  - Drug abuse [None]
  - Drug withdrawal syndrome [None]
